FAERS Safety Report 7203980-4 (Version None)
Quarter: 2010Q4

REPORT INFORMATION
  Report Type: 
  Country: None (occurrence: None)
  Receive Date: 20101230
  Receipt Date: 20101222
  Transmission Date: 20110411
  Serious: Yes (Hospitalization)
  Sender: FDA-Public Use
  Company Number: GB-PERRIGO-10GB015847

PATIENT
  Age: 27 Month
  Sex: Female

DRUGS (1)
  1. ACETAMINOPHEN SLOW RELEASE [Suspect]
     Indication: PRODUCT USED FOR UNKNOWN INDICATION
     Dosage: UNKNOWN, SINGLE
     Route: 048

REACTIONS (4)
  - LACTIC ACIDOSIS [None]
  - OVERDOSE [None]
  - SOMNOLENCE [None]
  - VOMITING [None]
